FAERS Safety Report 9888747 (Version 2)
Quarter: 2014Q1

REPORT INFORMATION
  Report Type: Spontaneous
  Country: FR (occurrence: FR)
  Receive Date: 20140211
  Receipt Date: 20140211
  Transmission Date: 20141002
  Serious: Yes (Hospitalization)
  Sender: FDA-Public Use
  Company Number: FR-BRISTOL-MYERS SQUIBB COMPANY-19819184

PATIENT
  Age: 32 Year
  Sex: Female

DRUGS (2)
  1. ABILIFY TABS [Suspect]
     Indication: BIPOLAR DISORDER
     Route: 048
     Dates: start: 20131031
  2. VALIUM [Concomitant]
     Dosage: TABS
     Route: 048

REACTIONS (2)
  - Accommodation disorder [Recovered/Resolved]
  - Vision blurred [Recovered/Resolved]
